FAERS Safety Report 9124371 (Version 1)
Quarter: 2013Q1

REPORT INFORMATION
  Report Type: Spontaneous
  Country: GR (occurrence: GR)
  Receive Date: 20130227
  Receipt Date: 20130227
  Transmission Date: 20140127
  Serious: Yes (Death, Hospitalization, Other)
  Sender: FDA-Public Use
  Company Number: PHHY2013GR019098

PATIENT
  Age: 72 Year
  Sex: Female

DRUGS (5)
  1. ESCITALOPRAM [Suspect]
     Dosage: 20 MG, QD
  2. BUSPIRONE HYDROCHLORIDE [Suspect]
     Dosage: 10 MG, QD
  3. AMLODIPINE BESYLATE [Suspect]
     Dosage: 5 MG, QD
  4. IRBESARTAN [Suspect]
     Dosage: 150 MG, QD
  5. LITHIUM CARBONATE [Suspect]
     Dosage: 300 MG, TID

REACTIONS (14)
  - Acute respiratory distress syndrome [Fatal]
  - Cardio-respiratory arrest [Fatal]
  - Neuroleptic malignant syndrome [Fatal]
  - Depressed level of consciousness [Fatal]
  - Hyperpyrexia [Fatal]
  - Stupor [Fatal]
  - Pyrexia [Fatal]
  - Tachypnoea [Fatal]
  - Leukocytosis [Fatal]
  - Rhabdomyolysis [Unknown]
  - Renal failure acute [Unknown]
  - Muscle rigidity [Fatal]
  - Myoglobinuria [Unknown]
  - Drug interaction [Unknown]
